APPROVED DRUG PRODUCT: FOCALIN
Active Ingredient: DEXMETHYLPHENIDATE HYDROCHLORIDE
Strength: 5MG
Dosage Form/Route: TABLET;ORAL
Application: N021278 | Product #002 | TE Code: AB
Applicant: SANDOZ INC
Approved: Nov 13, 2001 | RLD: Yes | RS: No | Type: RX